FAERS Safety Report 16488850 (Version 1)
Quarter: 2019Q2

REPORT INFORMATION
  Report Type: Report from Study
  Country: None (occurrence: CA)
  Receive Date: 20190627
  Receipt Date: 20190627
  Transmission Date: 20190711
  Serious: Yes (Other)
  Sender: FDA-Public Use
  Company Number: CA-ABBVIE-17K-028-1839773-00

PATIENT
  Sex: Male

DRUGS (1)
  1. HUMIRA [Suspect]
     Active Substance: ADALIMUMAB
     Indication: CROHN^S DISEASE
     Route: 058
     Dates: start: 20150729

REACTIONS (15)
  - Abdominal operation [Unknown]
  - Post procedural infection [Not Recovered/Not Resolved]
  - Therapeutic response shortened [Unknown]
  - Colostomy [Unknown]
  - Dry skin [Not Recovered/Not Resolved]
  - Stoma site discharge [Not Recovered/Not Resolved]
  - Visual impairment [Not Recovered/Not Resolved]
  - Crohn^s disease [Not Recovered/Not Resolved]
  - Diarrhoea [Not Recovered/Not Resolved]
  - Prosthesis implantation [Unknown]
  - Mucous stools [Not Recovered/Not Resolved]
  - Arthralgia [Not Recovered/Not Resolved]
  - Post procedural discharge [Unknown]
  - Abdominal pain [Not Recovered/Not Resolved]
  - Dry eye [Not Recovered/Not Resolved]
